FAERS Safety Report 4722345-8 (Version None)
Quarter: 2005Q3

REPORT INFORMATION
  Report Type: 
  Country: None (occurrence: None)
  Receive Date: 20050722
  Receipt Date: 20050303
  Transmission Date: 20060218
  Serious: No
  Sender: FDA-Public Use
  Company Number: US-GLAXOSMITHKLINE-A0548179A

PATIENT
  Sex: Female

DRUGS (8)
  1. AVANDIA [Suspect]
     Dosage: 4MG PER DAY
     Route: 048
     Dates: start: 20030101
  2. STARLIX [Concomitant]
  3. ARIMIDEX [Concomitant]
  4. MEGESTROL [Concomitant]
  5. LEVOXYL [Concomitant]
  6. PROZAC [Concomitant]
  7. DOXEPIN HCL [Concomitant]
  8. CLONAZEPAM [Concomitant]

REACTIONS (2)
  - BLOOD PRESSURE INCREASED [None]
  - WEIGHT INCREASED [None]
